FAERS Safety Report 13096888 (Version 1)
Quarter: 2017Q1

REPORT INFORMATION
  Report Type: Spontaneous
  Country: US (occurrence: US)
  Receive Date: 20170106
  Receipt Date: 20170106
  Transmission Date: 20170428
  Serious: Yes (Disabling)
  Sender: FDA-Public Use
  Company Number: None

PATIENT
  Age: 32 Year
  Sex: Male
  Weight: 83.25 kg

DRUGS (2)
  1. SUBUTEX [Suspect]
     Active Substance: BUPRENORPHINE HYDROCHLORIDE
     Indication: PAIN
     Dosage: ?          QUANTITY:1 TABLET(S);?
     Route: 060
     Dates: start: 20130101, end: 20161220
  2. GABAPENTIN. [Concomitant]
     Active Substance: GABAPENTIN

REACTIONS (7)
  - Road traffic accident [None]
  - Loss of libido [None]
  - Anger [None]
  - Mood swings [None]
  - Sleep disorder [None]
  - Weight decreased [None]
  - Dependence [None]

NARRATIVE: CASE EVENT DATE: 20161220
